FAERS Safety Report 7639076-7 (Version None)
Quarter: 2011Q3

REPORT INFORMATION
  Report Type: 
  Country: None (occurrence: None)
  Receive Date: 20110727
  Receipt Date: 20110718
  Transmission Date: 20111222
  Serious: Yes (Death)
  Sender: FDA-Public Use
  Company Number: GW-ABBOTT-11P-071-0838304-00

PATIENT
  Sex: Female
  Weight: 41 kg

DRUGS (4)
  1. LAMIVUDINE [Concomitant]
     Indication: HIV INFECTION
     Route: 048
     Dates: start: 20110604
  2. KALETRA [Suspect]
     Indication: HIV INFECTION
     Route: 048
     Dates: start: 20110604
  3. ZIDOVUDINE [Concomitant]
     Indication: HIV INFECTION
     Route: 048
     Dates: start: 20110604
  4. COTRIM [Concomitant]
     Indication: PROPHYLAXIS
     Dates: start: 20110603

REACTIONS (1)
  - DEATH [None]
